FAERS Safety Report 4808632-3 (Version None)
Quarter: 2005Q4

REPORT INFORMATION
  Report Type: 
  Country: None (occurrence: None)
  Receive Date: 20051021
  Receipt Date: 20050221
  Transmission Date: 20060501
  Serious: Yes (Hospitalization)
  Sender: FDA-Public Use
  Company Number: DE_050215296

PATIENT
  Age: 51 Year
  Sex: Female
  Weight: 92 kg

DRUGS (6)
  1. ZYPREXA [Suspect]
     Indication: SCHIZOAFFECTIVE DISORDER
     Dosage: 15 MG DAY
     Dates: start: 20020905
  2. NEUROCIL (LEVOMEPROMAZINE MALEATE0 [Concomitant]
  3. FINLEPSIN (CARBAMAZEPINE RIVOPHARM) [Concomitant]
  4. XIMOVAN (ZOPICLONE) [Concomitant]
  5. STANGYL (TRIMIPRAMINE  MALEATE) [Concomitant]
  6. CITALOPRAM HYDROBROMIDE [Concomitant]

REACTIONS (4)
  - ERYTHEMA [None]
  - PAIN [None]
  - SWELLING [None]
  - THROMBOSIS [None]
